FAERS Safety Report 4470883-8 (Version None)
Quarter: 2004Q4

REPORT INFORMATION
  Report Type: 
  Country: None (occurrence: None)
  Receive Date: 20041011
  Receipt Date: 20040930
  Transmission Date: 20050328
  Serious: Yes (Other)
  Sender: FDA-Public Use
  Company Number: GB-JNJFOC-20041000531

PATIENT
  Age: 63 Year
  Sex: Female
  Weight: 79 kg

DRUGS (2)
  1. LYRINEL [Suspect]
     Route: 049
  2. VENLAFAXINE [Suspect]
     Indication: DEPRESSION
     Route: 049
     Dates: start: 20020601, end: 20040730

REACTIONS (3)
  - DRUG INTERACTION [None]
  - JAUNDICE CHOLESTATIC [None]
  - PRURITUS [None]
